FAERS Safety Report 6150072-1 (Version None)
Quarter: 2009Q2

REPORT INFORMATION
  Report Type: 
  Country: None (occurrence: None)
  Receive Date: 20090409
  Receipt Date: 20090401
  Transmission Date: 20091009
  Serious: Yes (Hospitalization)
  Sender: FDA-Public Use
  Company Number: IT-ELI_LILLY_AND_COMPANY-IT200904000458

PATIENT
  Sex: Male

DRUGS (3)
  1. BYETTA [Suspect]
     Indication: TYPE 2 DIABETES MELLITUS
     Dosage: 10 UG, 2/D
     Route: 065
     Dates: start: 20080623, end: 20090211
  2. REPAGLINIDE [Concomitant]
     Dosage: 2 D/F, UNKNOWN
     Route: 048
     Dates: start: 20080131, end: 20080211
  3. METFORMIN HCL [Concomitant]
     Dosage: 2000 MG, UNKNOWN
     Route: 048
     Dates: start: 20071005, end: 20090211

REACTIONS (1)
  - PANCREATITIS [None]
